FAERS Safety Report 19661629 (Version 7)
Quarter: 2022Q1

REPORT INFORMATION
  Report Type: Spontaneous
  Country: CA (occurrence: CA)
  Receive Date: 20210805
  Receipt Date: 20220203
  Transmission Date: 20220423
  Serious: Yes (Hospitalization, Other)
  Sender: FDA-Public Use
  Company Number: CA-AUROBINDO-AUR-APL-2021-033522

PATIENT
  Age: 84 Year
  Sex: Male
  Weight: 83 kg

DRUGS (45)
  1. CIPROFLOXACIN [Suspect]
     Active Substance: CIPROFLOXACIN
     Indication: Wound
     Dosage: 500 MILLIGRAM, TWO TIMES A DAY
     Route: 048
  2. CIPROFLOXACIN [Suspect]
     Active Substance: CIPROFLOXACIN
     Indication: Streptococcal infection
  3. CIPROFLOXACIN [Suspect]
     Active Substance: CIPROFLOXACIN
     Indication: Staphylococcal infection
  4. CIPROFLOXACIN [Suspect]
     Active Substance: CIPROFLOXACIN
     Indication: Pseudomonas infection
  5. CIPROFLOXACIN [Suspect]
     Active Substance: CIPROFLOXACIN
     Indication: Localised infection
  6. CIPROFLOXACIN [Suspect]
     Active Substance: CIPROFLOXACIN
     Indication: Osteomyelitis bacterial
  7. CIPROFLOXACIN [Suspect]
     Active Substance: CIPROFLOXACIN
     Indication: Beta haemolytic streptococcal infection
  8. CIPROFLOXACIN [Suspect]
     Active Substance: CIPROFLOXACIN
     Indication: Diabetic foot infection
  9. ERTAPENEM [Suspect]
     Active Substance: ERTAPENEM
     Indication: Wound
     Dosage: 1 GRAM, ONCE A DAY
     Route: 042
  10. ERTAPENEM [Suspect]
     Active Substance: ERTAPENEM
     Indication: Wound infection staphylococcal
  11. ERTAPENEM [Suspect]
     Active Substance: ERTAPENEM
     Indication: Wound infection pseudomonas
  12. ERTAPENEM [Suspect]
     Active Substance: ERTAPENEM
     Indication: Osteomyelitis bacterial
  13. ERTAPENEM [Suspect]
     Active Substance: ERTAPENEM
     Indication: Beta haemolytic streptococcal infection
  14. ERTAPENEM [Suspect]
     Active Substance: ERTAPENEM
     Indication: Localised infection
  15. ERTAPENEM [Suspect]
     Active Substance: ERTAPENEM
     Indication: Diabetic foot infection
  16. RAMIPRIL [Suspect]
     Active Substance: RAMIPRIL
     Indication: Product used for unknown indication
     Dosage: UNK
     Route: 048
  17. ONDANSETRON [Suspect]
     Active Substance: ONDANSETRON
     Indication: Nausea
     Dosage: UNK
     Route: 042
  18. GENTAMICIN [Suspect]
     Active Substance: GENTAMICIN
     Indication: Pseudomonas infection
     Dosage: 160 MILLIGRAM, ONCE A DAY(4 WEEKS)
     Route: 042
  19. GENTAMICIN [Suspect]
     Active Substance: GENTAMICIN
     Indication: Osteomyelitis
  20. GENTAMICIN [Suspect]
     Active Substance: GENTAMICIN
     Indication: Pseudomonas infection
  21. GENTAMICIN [Suspect]
     Active Substance: GENTAMICIN
     Indication: Osteomyelitis bacterial
  22. GENTAMICIN [Suspect]
     Active Substance: GENTAMICIN
     Indication: Diabetic foot infection
  23. CLOXACILLIN [Concomitant]
     Active Substance: CLOXACILLIN
     Indication: Wound
     Dosage: UNK
     Route: 048
  24. CLOXACILLIN [Concomitant]
     Active Substance: CLOXACILLIN
     Indication: Staphylococcal infection
  25. CLOXACILLIN [Concomitant]
     Active Substance: CLOXACILLIN
     Indication: Pseudomonas infection
  26. CLOXACILLIN [Concomitant]
     Active Substance: CLOXACILLIN
     Indication: Diabetic foot infection
  27. CLOXACILLIN [Concomitant]
     Active Substance: CLOXACILLIN
     Indication: Beta haemolytic streptococcal infection
  28. CEFTRIAXONE [Concomitant]
     Active Substance: CEFTRIAXONE
     Indication: Evidence based treatment
     Dosage: 2 GRAM, ONCE A DAY
     Route: 042
  29. CEFTRIAXONE [Concomitant]
     Active Substance: CEFTRIAXONE
     Indication: Diabetic foot infection
     Dosage: UNK
     Route: 030
  30. CEFTRIAXONE [Concomitant]
     Active Substance: CEFTRIAXONE
     Indication: Antibiotic therapy
  31. METRONIDAZOLE [Concomitant]
     Active Substance: METRONIDAZOLE
     Indication: Evidence based treatment
     Dosage: 500 MILLIGRAM, TWO TIMES A DAY
     Route: 048
  32. METRONIDAZOLE [Concomitant]
     Active Substance: METRONIDAZOLE
     Indication: Diabetic foot infection
  33. METRONIDAZOLE [Concomitant]
     Active Substance: METRONIDAZOLE
     Indication: Antibiotic therapy
  34. CEFAZOLIN [Concomitant]
     Active Substance: CEFAZOLIN
     Indication: Product used for unknown indication
     Dosage: 2000 MILLIGRAM, 3 TIMES A DAY
     Route: 065
  35. CEFAZOLIN [Concomitant]
     Active Substance: CEFAZOLIN
     Indication: Prophylaxis
  36. CEFAZOLIN [Concomitant]
     Active Substance: CEFAZOLIN
     Indication: Antibiotic prophylaxis
  37. CEFTAZIDIME [Concomitant]
     Active Substance: CEFTAZIDIME
     Indication: Product used for unknown indication
     Dosage: UNK
     Route: 065
  38. FOSFOMYCIN [Concomitant]
     Active Substance: FOSFOMYCIN
     Indication: Product used for unknown indication
     Dosage: 6 GRAM, 3 TIMES A DAY
     Route: 042
  39. FOSFOMYCIN [Concomitant]
     Active Substance: FOSFOMYCIN
     Indication: Pseudomonas infection
  40. FOSFOMYCIN [Concomitant]
     Active Substance: FOSFOMYCIN
     Indication: Diabetic foot infection
  41. INVANZ [Concomitant]
     Active Substance: ERTAPENEM SODIUM
     Indication: Product used for unknown indication
     Dosage: UNK
     Route: 030
  42. MEROPENEM [Concomitant]
     Active Substance: MEROPENEM
     Indication: Product used for unknown indication
     Dosage: UNK
     Route: 042
  43. MEROPENEM [Concomitant]
     Active Substance: MEROPENEM
     Indication: Pseudomonas infection
  44. MEROPENEM [Concomitant]
     Active Substance: MEROPENEM
     Indication: Diabetic foot infection
  45. PIPERACILLIN AND TAZOBACTAM [Concomitant]
     Active Substance: PIPERACILLIN SODIUM\TAZOBACTAM SODIUM
     Indication: Product used for unknown indication
     Dosage: 1.5 GRAM, 3 TIMES A DAY
     Route: 042

REACTIONS (13)
  - Acute kidney injury [Recovered/Resolved]
  - Hypokalaemia [Recovered/Resolved]
  - Pathogen resistance [Recovered/Resolved]
  - Blood creatinine increased [Not Recovered/Not Resolved]
  - Drug ineffective [Unknown]
  - Decreased appetite [Recovered/Resolved]
  - Arterial angioplasty [Recovered/Resolved]
  - Vomiting [Recovered/Resolved]
  - Fall [Recovered/Resolved]
  - Foot amputation [Recovered/Resolved]
  - Nausea [Recovered/Resolved]
  - Condition aggravated [Unknown]
  - Drug resistance [Unknown]
